FAERS Safety Report 13547255 (Version 1)
Quarter: 2017Q2

REPORT INFORMATION
  Report Type: Report from Study
  Country: DE (occurrence: AR)
  Receive Date: 20170515
  Receipt Date: 20170515
  Transmission Date: 20170830
  Serious: Yes (Death)
  Sender: FDA-Public Use
  Company Number: DE-ACTELION-A-NJ2017-153754

PATIENT
  Age: 66 Year
  Sex: Male

DRUGS (2)
  1. VENTAVIS [Suspect]
     Active Substance: ILOPROST
     Indication: PULMONARY HYPERTENSION
     Dosage: 2.5 MCG, QID
     Route: 055
     Dates: start: 20141031, end: 20170225
  2. BOSENTAN. [Concomitant]
     Active Substance: BOSENTAN

REACTIONS (2)
  - Arrhythmia [Fatal]
  - Product use issue [Unknown]

NARRATIVE: CASE EVENT DATE: 20170225
